FAERS Safety Report 9753777 (Version 3)
Quarter: 2015Q3

REPORT INFORMATION
  Report Type: Spontaneous
  Country: US (occurrence: US)
  Receive Date: 20131213
  Receipt Date: 20150805
  Transmission Date: 20151125
  Serious: No
  Sender: FDA-Public Use
  Company Number: US-GILEAD-2010-0026675

PATIENT
  Age: 84 Year
  Sex: Female
  Weight: 67.58 kg

DRUGS (14)
  1. PLAVIX [Concomitant]
     Active Substance: CLOPIDOGREL BISULFATE
  2. LEVOTHROID [Concomitant]
     Active Substance: LEVOTHYROXINE SODIUM
  3. ATENOLOL. [Concomitant]
     Active Substance: ATENOLOL
  4. ASPIRIN. [Concomitant]
     Active Substance: ASPIRIN
  5. BENEFIBER [Concomitant]
     Active Substance: STARCH, WHEAT
  6. LETAIRIS [Suspect]
     Active Substance: AMBRISENTAN
     Indication: PULMONARY ARTERIAL HYPERTENSION
     Route: 048
     Dates: start: 20080820, end: 20100225
  7. OXYGEN. [Concomitant]
     Active Substance: OXYGEN
  8. PROPYLTHIOURACIL. [Concomitant]
     Active Substance: PROPYLTHIOURACIL
  9. ERGOCALCIFEROL/NICOTINAMIDE/RETINOL/ASCORBIC ACID/FOLIC ACID/PANTHENOL/RIBOFLAVIN/THIAMINE HYDROCHLO [Concomitant]
  10. CELEBREX [Concomitant]
     Active Substance: CELECOXIB
  11. CARBIDOPA-LEVODOPA [Concomitant]
     Active Substance: CARBIDOPA\LEVODOPA
  12. VITAMIN B12 [Concomitant]
     Active Substance: CYANOCOBALAMIN
  13. COENZYME Q10 [Concomitant]
     Active Substance: UBIDECARENONE
  14. CALCIUM +D [Concomitant]
     Active Substance: CALCIUM\VITAMIN D

REACTIONS (1)
  - Nasal congestion [Unknown]
